FAERS Safety Report 14340746 (Version 1)
Quarter: 2018Q1

REPORT INFORMATION
  Report Type: Report from Study
  Country: DE (occurrence: DE)
  Receive Date: 20180101
  Receipt Date: 20180101
  Transmission Date: 20180509
  Serious: Yes (Hospitalization, Other)
  Sender: FDA-Public Use
  Company Number: DE-ROCHE-1657339

PATIENT
  Age: 75 Year
  Sex: Male
  Weight: 90 kg

DRUGS (4)
  1. BEVACIZUMAB. [Suspect]
     Active Substance: BEVACIZUMAB
     Indication: COLORECTAL CANCER METASTATIC
     Dosage: LAST DOSE OF BEVACIZUMAB PRIOR TO THE SUBILEUS IN CONTEXT OF COPROSTASIS: 06/JUL/2015?LAST DOSE OF B
     Route: 042
     Dates: start: 20140905
  2. XELODA [Suspect]
     Active Substance: CAPECITABINE
     Indication: COLORECTAL CANCER
     Dosage: FROM D1 TO D14, ONE WEEK PAUSE?NEXT DOSES ON 18/SEP/2014, 25/SEP/2014, 06/NOV/2014, 27/NOV/2014, 06/
     Route: 048
     Dates: start: 20140905, end: 20150830
  3. OXALIPLATIN. [Concomitant]
     Active Substance: OXALIPLATIN
     Indication: COLORECTAL CANCER
     Dosage: NEXT DOSES ON 12/SEP/2014, 25/SEP/2014, 02/OCT/2014, O6/NOV/2014, 13/NOV/2014, 27/NOV/2014, 04/DEC/2
     Route: 042
     Dates: start: 20140905, end: 20150824
  4. XELODA [Suspect]
     Active Substance: CAPECITABINE
     Dosage: FROM D1 TO D14, ONE WEEK PAUSE?NEXT DOSES ON 18/SEP/2014, 25/SEP/2014, 06/NOV/2014, 27/NOV/2014, 06/
     Route: 048
     Dates: start: 20150824, end: 20150913

REACTIONS (3)
  - Pelvic venous thrombosis [Recovered/Resolved]
  - Faecaloma [Recovered/Resolved]
  - Subileus [Recovered/Resolved]

NARRATIVE: CASE EVENT DATE: 20150720
